FAERS Safety Report 24776164 (Version 1)
Quarter: 2024Q4

REPORT INFORMATION
  Report Type: Spontaneous
  Country: JP (occurrence: JP)
  Receive Date: 20241226
  Receipt Date: 20241226
  Transmission Date: 20250114
  Serious: Yes (Other)
  Sender: JOHNSON AND JOHNSON
  Company Number: JP-JNJFOC-20241272695

PATIENT
  Age: 76 Year
  Sex: Male

DRUGS (2)
  1. ERLEADA [Suspect]
     Active Substance: APALUTAMIDE
     Indication: Product used for unknown indication
     Dosage: DOSE UNKNOWN
     Route: 048
  2. DEGARELIX [Concomitant]
     Active Substance: DEGARELIX
     Dosage: DOSE UNKNOWN
     Route: 058

REACTIONS (2)
  - Syncope [Unknown]
  - Hypotension [Unknown]
